FAERS Safety Report 23091950 (Version 1)
Quarter: 2023Q4

REPORT INFORMATION
  Report Type: Spontaneous
  Country: US (occurrence: US)
  Receive Date: 20231021
  Receipt Date: 20231021
  Transmission Date: 20240110
  Serious: No
  Sender: FDA-Public Use
  Company Number: US-ABBVIE-5452491

PATIENT

DRUGS (1)
  1. UBRELVY [Suspect]
     Active Substance: UBROGEPANT
     Indication: Migraine
     Route: 048

REACTIONS (10)
  - Drug intolerance [Unknown]
  - Therapeutic product effect incomplete [Unknown]
  - Dysgeusia [Unknown]
  - Migraine [Unknown]
  - Nausea [Unknown]
  - Rhinalgia [Unknown]
  - Product taste abnormal [Unknown]
  - Oropharyngeal discomfort [Unknown]
  - Therapeutic product effect delayed [Unknown]
  - Drug ineffective [Unknown]
